FAERS Safety Report 9304226 (Version 6)
Quarter: 2013Q3

REPORT INFORMATION
  Report Type: Report from Study
  Country: US (occurrence: US)
  Receive Date: 20130522
  Receipt Date: 20130806
  Transmission Date: 20140515
  Serious: Yes (Death, Hospitalization, Other)
  Sender: FDA-Public Use
  Company Number: US-ACTELION-A-US2013-83216

PATIENT
  Age: 67 Year
  Sex: Male

DRUGS (5)
  1. VENTAVIS [Suspect]
     Indication: PULMONARY ARTERIAL HYPERTENSION
     Dosage: 5 ?G, UNK
     Route: 055
  2. VENTAVIS [Suspect]
     Dosage: 2.5 ?G, UNK
     Route: 055
  3. VENTAVIS [Suspect]
     Dosage: 2.5 ?G, UNK
     Route: 055
  4. TRACLEER [Suspect]
     Indication: PULMONARY ARTERIAL HYPERTENSION
     Dosage: UNK
     Route: 048
  5. ASA [Concomitant]

REACTIONS (11)
  - Death [Fatal]
  - Limb injury [Unknown]
  - Cellulitis [Not Recovered/Not Resolved]
  - Haematoma [Not Recovered/Not Resolved]
  - Respiratory distress [Not Recovered/Not Resolved]
  - Resuscitation [Unknown]
  - Oxygen saturation decreased [Not Recovered/Not Resolved]
  - Blood pressure decreased [Recovering/Resolving]
  - Loss of consciousness [Not Recovered/Not Resolved]
  - Oedema peripheral [Unknown]
  - Syncope [Unknown]
